FAERS Safety Report 5930893-8 (Version None)
Quarter: 2008Q4

REPORT INFORMATION
  Report Type: 
  Country: None (occurrence: None)
  Receive Date: 20081002
  Receipt Date: 20080730
  Transmission Date: 20090506
  Serious: Yes (Hospitalization, Disabling, Other)
  Sender: FDA-Public Use
  Company Number: 2008-0016614

PATIENT
  Age: 76 Year
  Sex: Female
  Weight: 60.3284 kg

DRUGS (7)
  1. TRUVADA [Suspect]
     Indication: HIV INFECTION
     Dosage: 1 DOSAGE FORMS, 1 IN 1 D, ORAL
     Route: 048
     Dates: start: 20050812, end: 20080515
  2. LISINOPRIL [Suspect]
     Indication: HYPERTENSION
     Dosage: 10 MG, 1 IN 1 D, ORAL
     Route: 048
  3. ATAZANAVIR SULFATE [Concomitant]
  4. RITONAVIR (RITONAVIR) [Concomitant]
  5. ASPIRIN [Concomitant]
  6. FENOFIBRATE [Concomitant]
  7. CRESTOR [Concomitant]

REACTIONS (1)
  - RENAL TUBULAR NECROSIS [None]
